FAERS Safety Report 15999906 (Version 1)
Quarter: 2019Q1

REPORT INFORMATION
  Report Type: Spontaneous
  Country: US (occurrence: US)
  Receive Date: 20190223
  Receipt Date: 20190223
  Transmission Date: 20190418
  Serious: Yes (Other)
  Sender: FDA-Public Use
  Company Number: None

PATIENT
  Age: 47 Year
  Sex: Female
  Weight: 67.5 kg

DRUGS (1)
  1. CYMBALTA [Suspect]
     Active Substance: DULOXETINE HYDROCHLORIDE
     Indication: FIBROMYALGIA
     Dosage: ?          QUANTITY:1 CAPSULE(S);?
     Route: 048
     Dates: start: 20181101, end: 20190215

REACTIONS (7)
  - Diarrhoea [None]
  - Nausea [None]
  - Back pain [None]
  - Chest pain [None]
  - Abdominal pain [None]
  - Headache [None]
  - Withdrawal syndrome [None]

NARRATIVE: CASE EVENT DATE: 20190215
